FAERS Safety Report 5084534-5 (Version None)
Quarter: 2006Q3

REPORT INFORMATION
  Report Type: 
  Country: None (occurrence: None)
  Receive Date: 20060821
  Receipt Date: 20060810
  Transmission Date: 20061208
  Serious: Yes (Hospitalization)
  Sender: FDA-Public Use
  Company Number: VE-MERCK-0608VEN00001

PATIENT
  Age: 50 Year
  Sex: Female

DRUGS (3)
  1. PRIMAXIN [Suspect]
     Indication: PSEUDOMONAL SEPSIS
     Route: 042
     Dates: start: 20060512, end: 20060516
  2. AMIKACIN [Concomitant]
     Route: 065
  3. CEFTRIAXONE SODIUM [Concomitant]
     Route: 065

REACTIONS (1)
  - DRUG INEFFECTIVE [None]
